FAERS Safety Report 7611459-0 (Version None)
Quarter: 2011Q3

REPORT INFORMATION
  Report Type: 
  Country: None (occurrence: None)
  Receive Date: 20110715
  Receipt Date: 20110706
  Transmission Date: 20111222
  Serious: Yes (Other)
  Sender: FDA-Public Use
  Company Number: JP-ROCHE-789520

PATIENT
  Age: 60 Year
  Sex: Female

DRUGS (8)
  1. LORAZEPAM [Suspect]
     Indication: DEPRESSION
     Dosage: DOSAGE IS UNCERTAIN, FORM:PERORAL AGENT
     Route: 048
     Dates: start: 20060101
  2. PAROXETINE HCL [Suspect]
     Indication: DEPRESSION
     Dosage: DOSAGE IS UNCERTAIN, FORM:PERORAL AGENT
     Route: 048
     Dates: start: 20060101
  3. LEVOTHYROXINE SODIUM [Concomitant]
     Dosage: DOSAGE IS UNCERTAIN, FORM:PERORAL AGENT
     Route: 048
     Dates: start: 20090101
  4. OLANZAPINE [Suspect]
     Indication: DEPRESSION
     Dosage: DOSAGE IS UNCERTAIN, FORM:PERORAL AGENT
     Route: 048
     Dates: start: 20060101
  5. CLONAZEPAM [Suspect]
     Indication: DEPRESSION
     Dosage: DOSAGE IS UNCERTAIN
     Route: 048
     Dates: start: 20060101
  6. VALPROATE SODIUM [Suspect]
     Indication: DEPRESSION
     Dosage: DOSAGE IS UNCERTAIN, FORM:PERORAL AGENT
     Route: 048
  7. BIPERIDEN HYDROCHLORIDE TAB [Suspect]
     Indication: DEPRESSION
     Dosage: DOSAGE IS UNCERTAIN, FORM:PERORAL AGENT
     Route: 048
  8. NITRAZEPAM [Suspect]
     Indication: DEPRESSION
     Dosage: DOSAGE IS UNCERTAIN, FORM:PERORAL AGENT
     Route: 048
     Dates: start: 20060101

REACTIONS (2)
  - INAPPROPRIATE ANTIDIURETIC HORMONE SECRETION [None]
  - PNEUMONIA [None]
